FAERS Safety Report 23581594 (Version 1)
Quarter: 2024Q1

REPORT INFORMATION
  Report Type: Spontaneous
  Country: UA (occurrence: UA)
  Receive Date: 20240229
  Receipt Date: 20240229
  Transmission Date: 20240410
  Serious: Yes (Other)
  Sender: FDA-Public Use
  Company Number: UA-PFIZER INC-PV202400027920

PATIENT
  Age: 57 Year
  Sex: Female

DRUGS (10)
  1. TYGACIL [Suspect]
     Active Substance: TIGECYCLINE
     Indication: Allergy test
     Dosage: 0.5 ML, SINGLE
     Route: 058
     Dates: start: 20240227, end: 20240227
  2. RHEOSORBILACT [Concomitant]
     Dosage: 200 ML
     Route: 042
  3. COLLOIDAL SILVER [Concomitant]
     Active Substance: SILVER
     Dosage: 1 TEA SPOON, 3X/DAY
     Route: 048
  4. ORGYL [Concomitant]
     Dosage: 500 MG, 2X/DAY
  5. MOXIFLOXACIN [Concomitant]
     Active Substance: MOXIFLOXACIN
     Dosage: 400 MG, 1X/DAY
  6. PANTOPRAZOLE [Concomitant]
     Active Substance: PANTOPRAZOLE
     Dosage: 40 MG, 2X/DAY
  7. DEXALGIN SACHET [Concomitant]
     Dosage: UNK, 3X/DAY
  8. ITOMED [Concomitant]
     Dosage: 50 MG, 3X/DAY
  9. FERSINOL [Concomitant]
     Dosage: 100 MG, 1X/DAY
  10. FLAMIDASE [Concomitant]
     Dosage: 1 TAB, 3X/DAY

REACTIONS (4)
  - Injection site pain [Recovered/Resolved]
  - Skin hyperpigmentation [Recovered/Resolved]
  - Swelling [Recovered/Resolved]
  - Skin discolouration [Recovered/Resolved]

NARRATIVE: CASE EVENT DATE: 20240227
